FAERS Safety Report 9660906 (Version 2)
Quarter: 2014Q1

REPORT INFORMATION
  Report Type: Spontaneous
  Country: PH (occurrence: PH)
  Receive Date: 20131031
  Receipt Date: 20140312
  Transmission Date: 20141002
  Serious: Yes (Other)
  Sender: FDA-Public Use
  Company Number: PH-B.I. PHARMACEUTICALS,INC./RIDGEFIELD-2013-BI-34934YA

PATIENT
  Age: 60 Year
  Sex: Male

DRUGS (3)
  1. TAMSULOSINA [Suspect]
     Indication: BENIGN PROSTATIC HYPERPLASIA
     Dosage: 400 MCG
     Route: 048
     Dates: start: 201310, end: 201310
  2. LOSARTAN [Concomitant]
     Route: 048
  3. METOPROLOL [Concomitant]
     Route: 048

REACTIONS (3)
  - Dizziness [Recovered/Resolved]
  - Circulatory collapse [Recovered/Resolved]
  - Blood pressure decreased [Recovered/Resolved]
